FAERS Safety Report 8256097-4 (Version None)
Quarter: 2012Q2

REPORT INFORMATION
  Report Type: 
  Country: None (occurrence: None)
  Receive Date: 20120403
  Receipt Date: 20120329
  Transmission Date: 20120825
  Serious: Yes (Hospitalization)
  Sender: FDA-Public Use
  Company Number: US-PFIZER INC-2012080845

PATIENT
  Sex: Female
  Weight: 102 kg

DRUGS (4)
  1. TIZANIDINE [Concomitant]
     Indication: MUSCLE SPASMS
     Dosage: 4 MG, AS NEEDED
  2. CELEBREX [Suspect]
     Indication: ARTHRITIS
     Dosage: 100 MG, 2X/DAY
     Route: 048
     Dates: start: 20110101
  3. LYRICA [Suspect]
     Indication: NEUROPATHY PERIPHERAL
     Dosage: 100 MG, 2X/DAY
     Route: 048
     Dates: start: 20110101
  4. ACETAMINOPHEN AND HYDROCODONE BITARTRATE [Concomitant]
     Indication: PAIN
     Dosage: 10/500 MG,AS NEEDED

REACTIONS (7)
  - ANXIETY [None]
  - HEAD INJURY [None]
  - SPEECH DISORDER [None]
  - BRAIN CONTUSION [None]
  - FALL [None]
  - LACERATION [None]
  - VITAMIN D DEFICIENCY [None]
